FAERS Safety Report 7556946-9 (Version None)
Quarter: 2011Q2

REPORT INFORMATION
  Report Type: 
  Country: None (occurrence: None)
  Receive Date: 20110616
  Receipt Date: 20110616
  Transmission Date: 20111010
  Serious: Yes (Other)
  Sender: FDA-Public Use
  Company Number: None

PATIENT
  Age: 68 Year
  Sex: Male
  Weight: 104.3273 kg

DRUGS (2)
  1. PRADAXA [Suspect]
     Indication: ANTICOAGULANT THERAPY
     Dosage: 150MG TWICE A DAY PO
     Route: 048
     Dates: start: 20110518, end: 20110612
  2. PRADAXA [Suspect]
     Indication: ATRIAL FIBRILLATION
     Dosage: 150MG TWICE A DAY PO
     Route: 048
     Dates: start: 20110518, end: 20110612

REACTIONS (10)
  - ABDOMINAL PAIN UPPER [None]
  - ABDOMINAL DISTENSION [None]
  - ASTHENIA [None]
  - DYSPHAGIA [None]
  - OESOPHAGEAL ULCER [None]
  - DYSPEPSIA [None]
  - FATIGUE [None]
  - NO THERAPEUTIC RESPONSE [None]
  - DYSPNOEA [None]
  - PLEURITIC PAIN [None]
